FAERS Safety Report 11147568 (Version 2)
Quarter: 2015Q3

REPORT INFORMATION
  Report Type: Spontaneous
  Country: US (occurrence: US)
  Receive Date: 20150529
  Receipt Date: 20150727
  Transmission Date: 20151125
  Serious: No
  Sender: FDA-Public Use
  Company Number: US-009507513-1505USA012756

PATIENT
  Sex: Female
  Weight: 67.12 kg

DRUGS (1)
  1. GRASTEK [Suspect]
     Active Substance: PHLEUM PRATENSE POLLEN
     Indication: SEASONAL ALLERGY
     Dosage: 2800BAU/ONE TABLET, ONCE DAILY
     Route: 048
     Dates: start: 2015, end: 2015

REACTIONS (3)
  - Increased appetite [Recovered/Resolved]
  - Incorrect route of drug administration [Unknown]
  - Weight increased [Recovered/Resolved]

NARRATIVE: CASE EVENT DATE: 2015
